FAERS Safety Report 7808843-9 (Version None)
Quarter: 2011Q4

REPORT INFORMATION
  Report Type: 
  Country: None (occurrence: None)
  Receive Date: 20111012
  Receipt Date: 20111006
  Transmission Date: 20120403
  Serious: Yes (Hospitalization)
  Sender: FDA-Public Use
  Company Number: US-B.I. PHARMACEUTICALS,INC./RIDGEFIELD-2011-BP-23722BP

PATIENT
  Sex: Female

DRUGS (9)
  1. SPIRIVA [Suspect]
     Dates: start: 20110909
  2. POTASSIUM CHLORIDE [Concomitant]
  3. FUROSEMIDE [Concomitant]
  4. ROSUVASTATIN CALCIUM [Concomitant]
  5. ADVAIR DISKUS 100/50 [Suspect]
     Indication: CHRONIC OBSTRUCTIVE PULMONARY DISEASE
     Route: 055
     Dates: start: 20100301
  6. FISH OIL [Concomitant]
  7. AMITRIPTYLINE HCL [Concomitant]
  8. ALBUTEROL SULFATE AUTOHALER [Suspect]
     Indication: BRONCHOSPASM
     Route: 055
  9. LEVOTHYROXINE SODIUM [Concomitant]

REACTIONS (6)
  - CHRONIC OBSTRUCTIVE PULMONARY DISEASE [None]
  - BRONCHITIS [None]
  - DYSPNOEA [None]
  - PNEUMONIA [None]
  - DEHYDRATION [None]
  - FEELING COLD [None]
